FAERS Safety Report 23405009 (Version 1)
Quarter: 2024Q1

REPORT INFORMATION
  Report Type: Spontaneous
  Country: US (occurrence: None)
  Receive Date: 20240112
  Receipt Date: 20240112
  Transmission Date: 20240410
  Serious: No
  Sender: FDA-Public Use
  Company Number: None

PATIENT
  Age: 44 Year
  Sex: Female

DRUGS (1)
  1. SCEMBLIX [Suspect]
     Active Substance: ASCIMINIB HYDROCHLORIDE
     Indication: Chronic myeloid leukaemia
     Dosage: 40MG TWICE DAILY PO?
     Route: 048
     Dates: start: 20230912

REACTIONS (3)
  - Dyspepsia [None]
  - Gastrooesophageal reflux disease [None]
  - Middle insomnia [None]
